FAERS Safety Report 4847370-8 (Version None)
Quarter: 2005Q4

REPORT INFORMATION
  Report Type: 
  Country: None (occurrence: None)
  Receive Date: 20051207
  Receipt Date: 20010906
  Transmission Date: 20060501
  Serious: Yes (Other)
  Sender: FDA-Public Use
  Company Number: PR-ROCHE-267904

PATIENT
  Age: 51 Year
  Sex: Female
  Weight: 58.5 kg

DRUGS (8)
  1. PEG-INTERFERON ALFA 2A (RO 25-8310) [Suspect]
     Route: 058
     Dates: start: 20010326, end: 20010906
  2. RIBAVIRIN [Suspect]
     Dosage: WITH FOOD.
     Route: 048
     Dates: start: 20010326, end: 20010831
  3. DIFLUCAN [Concomitant]
     Dates: start: 20010816, end: 20010905
  4. VITAMIN AND MINERAL PRENATAL SUPPLEMENT W/ FOLIC ACID CAP [Concomitant]
     Dates: start: 20010816, end: 20010905
  5. PROTONIX [Concomitant]
     Dates: start: 20010806, end: 20010905
  6. MOBIC [Concomitant]
     Dates: start: 20010806, end: 20010905
  7. EFFEXOR [Concomitant]
     Dates: start: 20010806, end: 20010905
  8. MYCELEX [Concomitant]
     Dates: start: 20010806, end: 20010905

REACTIONS (1)
  - CONNECTIVE TISSUE DISORDER [None]
